FAERS Safety Report 4349114-5 (Version None)
Quarter: 2004Q2

REPORT INFORMATION
  Report Type: 
  Country: None (occurrence: None)
  Receive Date: 20040427
  Receipt Date: 20040427
  Transmission Date: 20050107
  Serious: Yes (Life-Threatening)
  Sender: FDA-Public Use
  Company Number: None

PATIENT
  Age: 24 Year
  Sex: Female
  Weight: 61.2356 kg

DRUGS (1)
  1. YASMIN [Suspect]
     Dosage: 1 DAY ORAL
     Route: 048

REACTIONS (1)
  - PULMONARY EMBOLISM [None]
